FAERS Safety Report 9771960 (Version 1)
Quarter: 2013Q4

REPORT INFORMATION
  Report Type: Report from Study
  Country: US (occurrence: US)
  Receive Date: 20131219
  Receipt Date: 20131219
  Transmission Date: 20140711
  Serious: Yes (Hospitalization, Other)
  Sender: FDA-Public Use
  Company Number: US-ALEXION PHARMACEUTICALS INC.-A201304146

PATIENT
  Sex: 0

DRUGS (2)
  1. SOLIRIS [Suspect]
     Indication: PAROXYSMAL NOCTURNAL HAEMOGLOBINURIA
     Dosage: UNK
     Route: 042
  2. SOLIRIS [Suspect]
     Indication: HAEMOLYTIC URAEMIC SYNDROME

REACTIONS (8)
  - Cytomegalovirus infection [Unknown]
  - Thrombosis [Unknown]
  - Blindness [Recovered/Resolved]
  - Abasia [Unknown]
  - Dialysis [Recovered/Resolved]
  - Incontinence [Unknown]
  - Mental status changes [Unknown]
  - Depression [Unknown]
